FAERS Safety Report 4713717-6 (Version None)
Quarter: 2005Q3

REPORT INFORMATION
  Report Type: 
  Country: None (occurrence: None)
  Receive Date: 20050712
  Receipt Date: 20050630
  Transmission Date: 20060218
  Serious: No
  Sender: FDA-Public Use
  Company Number: 215779

PATIENT
  Age: 5 Year
  Sex: Female
  Weight: 14.7 kg

DRUGS (1)
  1. NUTROPIN AQ [Suspect]
     Indication: BODY HEIGHT BELOW NORMAL
     Dosage: 0.8 MG,  QD, SUBCUTANEOUS
     Route: 058
     Dates: start: 20030709

REACTIONS (2)
  - FALL [None]
  - HUMERUS FRACTURE [None]
